FAERS Safety Report 7011015-1 (Version None)
Quarter: 2010Q3

REPORT INFORMATION
  Report Type: 
  Country: None (occurrence: None)
  Receive Date: 20100923
  Receipt Date: 20090317
  Transmission Date: 20110219
  Serious: No
  Sender: FDA-Public Use
  Company Number: US-WYE-H06961108

PATIENT
  Age: 65 Year
  Sex: Female

DRUGS (1)
  1. PREMARIN [Suspect]
     Indication: VAGINAL HAEMORRHAGE
     Dosage: 0.5G DAILY X 14 DAYS, THEN 0.5G EVERY 4 DAYS
     Route: 067
     Dates: start: 20081001, end: 20081121

REACTIONS (2)
  - HEART RATE IRREGULAR [None]
  - VISION BLURRED [None]
